FAERS Safety Report 9474043 (Version 3)
Quarter: 2013Q4

REPORT INFORMATION
  Report Type: Report from Study
  Country: US (occurrence: US)
  Receive Date: 20130823
  Receipt Date: 20131101
  Transmission Date: 20140711
  Serious: No
  Sender: FDA-Public Use
  Company Number: PHEH2013US017834

PATIENT
  Sex: Female

DRUGS (5)
  1. TASIGNA [Suspect]
     Indication: CHRONIC MYELOID LEUKAEMIA
     Dosage: 300 MG, BID
     Route: 048
     Dates: start: 20130802
  2. NAPROSYN [Concomitant]
  3. SINGULAIR [Concomitant]
  4. AZITHROMYCIN [Concomitant]
  5. ZYRTEC [Concomitant]

REACTIONS (2)
  - Fatigue [Unknown]
  - Drug ineffective [Unknown]
